FAERS Safety Report 9931214 (Version 2)
Quarter: 2016Q2

REPORT INFORMATION
  Report Type: Report from Study
  Country: US (occurrence: US)
  Receive Date: 20140228
  Receipt Date: 20160418
  Transmission Date: 20160815
  Serious: Yes (Other)
  Sender: FDA-Public Use
  Company Number: US-ROCHE-1332192

PATIENT
  Age: 88 Year
  Sex: Female
  Weight: 62.2 kg

DRUGS (16)
  1. LOVAZA [Concomitant]
     Active Substance: OMEGA-3-ACID ETHYL ESTERS
  2. NORVASC [Concomitant]
     Active Substance: AMLODIPINE BESYLATE
     Route: 048
  3. TROPICAMIDE. [Concomitant]
     Active Substance: TROPICAMIDE
     Route: 047
  4. ACTOS [Concomitant]
     Active Substance: PIOGLITAZONE HYDROCHLORIDE
  5. AVASTIN [Suspect]
     Active Substance: BEVACIZUMAB
     Indication: PRODUCT USED FOR UNKNOWN INDICATION
     Dosage: OS
     Route: 047
     Dates: start: 20071010, end: 20100113
  6. VITAMIN D3 [Concomitant]
     Active Substance: CHOLECALCIFEROL
  7. LUCENTIS [Suspect]
     Active Substance: RANIBIZUMAB
     Indication: NEOVASCULAR AGE-RELATED MACULAR DEGENERATION
     Route: 050
     Dates: start: 20100402
  8. LEVOXYL [Concomitant]
     Active Substance: LEVOTHYROXINE SODIUM
  9. ZYMAR [Concomitant]
     Active Substance: GATIFLOXACIN
     Dosage: OS X 4 DAYS
     Route: 047
     Dates: start: 20071010, end: 20090309
  10. ZYMAR [Concomitant]
     Active Substance: GATIFLOXACIN
     Dosage: OS X 4 DAYS
     Route: 047
     Dates: start: 20100402, end: 20101013
  11. ASPIRIN. [Concomitant]
     Active Substance: ASPIRIN
     Route: 065
  12. DYNACIRC [Concomitant]
     Active Substance: ISRADIPINE
  13. VITAMIN C [Concomitant]
     Active Substance: ASCORBIC ACID
     Dosage: PRN
     Route: 065
  14. PHENYLEPHRINE [Concomitant]
     Active Substance: PHENYLEPHRINE\PHENYLEPHRINE HYDROCHLORIDE
     Route: 047
  15. OCUFLOX (UNITED STATES) [Concomitant]
     Dosage: FOUR TIMES FOR 4 DAYS AFTER INJECTION?DROPS 0.3%
     Route: 047
  16. PROPARACAINE [Concomitant]
     Active Substance: PROPARACAINE
     Route: 047

REACTIONS (8)
  - Rash [Unknown]
  - Erythema [Unknown]
  - Macular fibrosis [Unknown]
  - Macular oedema [Unknown]
  - Gastric disorder [Unknown]
  - Off label use [Unknown]
  - Vision blurred [Unknown]
  - Macular degeneration [Unknown]

NARRATIVE: CASE EVENT DATE: 201201
